FAERS Safety Report 25304708 (Version 1)
Quarter: 2025Q2

REPORT INFORMATION
  Report Type: Spontaneous
  Country: JP (occurrence: JP)
  Receive Date: 20250513
  Receipt Date: 20250513
  Transmission Date: 20250716
  Serious: Yes (Hospitalization, Other)
  Sender: PFIZER
  Company Number: JP-PFIZER INC-202500097845

PATIENT

DRUGS (1)
  1. NAFARELIN ACETATE [Suspect]
     Active Substance: NAFARELIN ACETATE

REACTIONS (1)
  - Fracture [Unknown]
